FAERS Safety Report 17924204 (Version 1)
Quarter: 2020Q2

REPORT INFORMATION
  Report Type: Spontaneous
  Country: US (occurrence: US)
  Receive Date: 20200622
  Receipt Date: 20200622
  Transmission Date: 20200714
  Serious: No
  Sender: FDA-Public Use
  Company Number: US-AKRON, INC.-2086470

PATIENT
  Sex: Female

DRUGS (1)
  1. LIDOCAINE HCL JELLY [Suspect]
     Active Substance: LIDOCAINE HYDROCHLORIDE
     Route: 061

REACTIONS (1)
  - Skin exfoliation [Unknown]
